FAERS Safety Report 18061165 (Version 1)
Quarter: 2020Q3

REPORT INFORMATION
  Report Type: Report from Study
  Country: CA (occurrence: CA)
  Receive Date: 20200723
  Receipt Date: 20200723
  Transmission Date: 20201103
  Serious: Yes (Life-Threatening, Other)
  Sender: FDA-Public Use
  Company Number: CA-PFIZER INC-2020278289

PATIENT

DRUGS (1)
  1. LIDOCAINE HCL [Suspect]
     Active Substance: LIDOCAINE HYDROCHLORIDE
     Indication: PAIN
     Dosage: 2000 MG (OVER 20 MIN)
     Route: 040

REACTIONS (3)
  - Local anaesthetic systemic toxicity [Recovered/Resolved]
  - Incorrect drug administration rate [Unknown]
  - Cardiac arrest [Recovered/Resolved]
